FAERS Safety Report 4405074-X (Version None)
Quarter: 2004Q3

REPORT INFORMATION
  Report Type: 
  Country: None (occurrence: None)
  Receive Date: 20040715
  Receipt Date: 20040630
  Transmission Date: 20050211
  Serious: Yes (Death)
  Sender: FDA-Public Use
  Company Number: 183933

PATIENT
  Age: 69 Year
  Sex: Female

DRUGS (14)
  1. AVONEX [Suspect]
     Indication: MULTIPLE SCLEROSIS
     Dosage: 30 MCG QW IM
     Route: 030
     Dates: start: 19991201, end: 20030901
  2. BACLOFEN [Concomitant]
  3. ZANAFLEX [Concomitant]
  4. MYSOLINE [Concomitant]
  5. METOPROLOL [Concomitant]
  6. ACCUPRIL [Concomitant]
  7. CLONIDINE HCL [Concomitant]
  8. LIPITOR [Concomitant]
  9. FUROSEMIDE [Concomitant]
  10. HUMULIN [Concomitant]
  11. PERI-COLACE [Concomitant]
  12. ALPHAGAN [Concomitant]
  13. GLUCOPHAGE [Concomitant]
  14. TYLENOL [Concomitant]

REACTIONS (5)
  - ASPIRATION [None]
  - MULTIPLE SCLEROSIS [None]
  - MYOCARDIAL INFARCTION [None]
  - RESPIRATORY ARREST [None]
  - URINARY TRACT INFECTION [None]
